FAERS Safety Report 20942418 (Version 2)
Quarter: 2022Q3

REPORT INFORMATION
  Report Type: Spontaneous
  Country: CA (occurrence: None)
  Receive Date: 20220610
  Receipt Date: 20220721
  Transmission Date: 20221026
  Serious: Yes (Other)
  Sender: FDA-Public Use
  Company Number: CA-PFIZER INC-202200798887

PATIENT
  Age: 50 Year
  Sex: Female

DRUGS (1)
  1. METHOTREXATE [Suspect]
     Active Substance: METHOTREXATE
     Indication: Rheumatoid arthritis
     Dosage: UNKNOWN DOSE
     Route: 048
     Dates: start: 202111, end: 202202

REACTIONS (10)
  - Nasal septum perforation [Unknown]
  - Urticarial vasculitis [Unknown]
  - Sjogren^s syndrome [Unknown]
  - Condition aggravated [Unknown]
  - Epistaxis [Recovered/Resolved]
  - Lymphopenia [Unknown]
  - Hypocomplementaemia [Unknown]
  - Swelling [Unknown]
  - Palpable purpura [Unknown]
  - Sensation of foreign body [Unknown]

NARRATIVE: CASE EVENT DATE: 20220101
